FAERS Safety Report 22006489 (Version 4)
Quarter: 2023Q4

REPORT INFORMATION
  Report Type: Spontaneous
  Country: US (occurrence: US)
  Receive Date: 20230217
  Receipt Date: 20231226
  Transmission Date: 20240110
  Serious: Yes (Hospitalization, Other)
  Sender: FDA-Public Use
  Company Number: US-PFIZER INC-PV202300028653

PATIENT
  Age: 51 Year
  Sex: Male

DRUGS (1)
  1. XALKORI [Suspect]
     Active Substance: CRIZOTINIB
     Dosage: 250 MG, 2X/DAY
     Route: 048

REACTIONS (6)
  - Vasogenic cerebral oedema [Recovering/Resolving]
  - Asthenia [Unknown]
  - Retroperitoneal haemorrhage [Unknown]
  - Clostridium difficile infection [Unknown]
  - Neoplasm progression [Unknown]
  - Nasal congestion [Unknown]

NARRATIVE: CASE EVENT DATE: 20210101
